FAERS Safety Report 16880395 (Version 1)
Quarter: 2019Q4

REPORT INFORMATION
  Report Type: Report from Study
  Country: RO (occurrence: RO)
  Receive Date: 20191003
  Receipt Date: 20191003
  Transmission Date: 20200122
  Serious: Yes (Hospitalization, Other)
  Sender: FDA-Public Use
  Company Number: RO-EMD SERONO-9114334

PATIENT
  Age: 63 Year
  Sex: Female

DRUGS (3)
  1. REBIF [Suspect]
     Active Substance: INTERFERON BETA-1A
     Indication: RELAPSING-REMITTING MULTIPLE SCLEROSIS
     Route: 058
     Dates: start: 20140819
  2. LIORESAL [Concomitant]
     Active Substance: BACLOFEN
     Indication: MUSCULOSKELETAL STIFFNESS
     Dates: start: 2013
  3. DRIPTATE [Concomitant]
     Indication: URINARY INCONTINENCE
     Dates: start: 2013

REACTIONS (6)
  - Blood cholesterol increased [Unknown]
  - Fistula [Recovering/Resolving]
  - Injection site cellulitis [Recovering/Resolving]
  - Arrhythmia [Unknown]
  - Lack of injection site rotation [Unknown]
  - Injection site abscess [Recovering/Resolving]

NARRATIVE: CASE EVENT DATE: 2018
